FAERS Safety Report 18782227 (Version 1)
Quarter: 2021Q1

REPORT INFORMATION
  Report Type: Spontaneous
  Country: DE (occurrence: DE)
  Receive Date: 20210125
  Receipt Date: 20210125
  Transmission Date: 20210419
  Serious: Yes (Hospitalization)
  Sender: FDA-Public Use
  Company Number: DE-MYLANLABS-2021M1003522

PATIENT
  Age: 67 Year
  Sex: Male
  Weight: 114 kg

DRUGS (25)
  1. FOSTER [Concomitant]
     Active Substance: BECLOMETHASONE\FORMOTEROL
     Dosage: UNK (200|6 ?G, 1?0?1?0, DOSAGE AEROSOL)
     Route: 055
  2. SIMVASTATIN. [Concomitant]
     Active Substance: SIMVASTATIN
     Dosage: 40 MILLIGRAM (40 MG, 0?0?1?0, TABLET)
  3. IPRATROPIUM BROMIDE. [Concomitant]
     Active Substance: IPRATROPIUM BROMIDE
     Dosage: UNK (ON DEMAND)
     Route: 055
  4. DIGITOXIN [Concomitant]
     Active Substance: DIGITOXIN
     Dosage: 0.07 MILLIGRAM (0.07 MG, 1?0?0?0, TABLETS)
  5. METAMIZOL                          /06276701/ [Concomitant]
     Active Substance: METAMIZOLE
     Dosage: 500 MILLIGRAM (500 MG, ON DEMAND, TABLETS)
  6. ROPINIROL                          /01242901/ [Concomitant]
     Dosage: 4 MILLIGRAM (4 MG, 0?0?0?1, TABLETS)
  7. TAMSULOSIN [Concomitant]
     Active Substance: TAMSULOSIN
     Dosage: 0.4 MILLIGRAM (0.4 MG, 0?0?1?0, PROLONGED?RELEASE TABLET
  8. FUROSEMID                          /00032601/ [Concomitant]
     Active Substance: FUROSEMIDE
     Dosage: 40 MILLIGRAM (40 MG, 1?0.5?0?0, TABLETS)
  9. PROPIVERINE [Concomitant]
     Active Substance: PROPIVERINE
     Dosage: 15 MILLIGRAM (15 MG, 1?0?1?0, TABLETS)
  10. BISOPROLOL [Suspect]
     Active Substance: BISOPROLOL
     Indication: PRODUCT USED FOR UNKNOWN INDICATION
     Dosage: 5 MILLIGRAM (5 MG, 1?0?1?0, TABLETS)
  11. INSULIN DEGLUDEC [Concomitant]
     Active Substance: INSULIN DEGLUDEC
     Dosage: 40 INTERNATIONAL UNIT (40 IE, 0?0?0?1, INJECTION/INFUSION SOLUTION)
     Route: 058
  12. INSULIN LISPRO [Concomitant]
     Active Substance: INSULIN LISPRO
     Dosage: UNK (ACCORDING TO SCHEME, INJECTION/INFUSION SOLUTION)
     Route: 058
  13. SPIRIVA [Concomitant]
     Active Substance: TIOTROPIUM BROMIDE MONOHYDRATE
     Dosage: 18 MICROGRAM (18 ?G, 1?0?0?0, DOSAGE AEROSOL)
     Route: 055
  14. QUETIAPIN [Concomitant]
     Active Substance: QUETIAPINE
     Dosage: 50 MILLIGRAM (50 MG, 1?0?1?0, PROLONGED?RELEASE TABLET)
  15. MAGNESIUM [Concomitant]
     Active Substance: MAGNESIUM
     Dosage: 300 MILLIGRAM (300 MG, ON DEMAND, GRANULES)
  16. NALOXONE W/OXYCODONE [Concomitant]
     Active Substance: NALOXONE HYDROCHLORIDE\OXYCODONE HYDROCHLORIDE
     Dosage: UNK (2.5|5 MG, 1?0?1?0, PROLONGED?RELEASE TABLET)
  17. SALBUTAMOL [Concomitant]
     Active Substance: ALBUTEROL
     Dosage: UNK (ON DEMAND)
     Route: 055
  18. FUROSEMID                          /00032601/ [Concomitant]
     Active Substance: FUROSEMIDE
     Dosage: 40 MILLIGRAM (40 MG, ON DEMAND, TABLETS)
  19. PANTOPRAZOL                        /01263201/ [Concomitant]
     Active Substance: PANTOPRAZOLE
     Dosage: 40 MILLIGRAM (40 MG, 1?0?0?0, TABLETS)
  20. APIXABAN [Concomitant]
     Active Substance: APIXABAN
     Dosage: 5 MILLIGRAM (5 MG, 1?0?1?0, TABLET)
  21. METFORMIN [Concomitant]
     Active Substance: METFORMIN HYDROCHLORIDE
     Dosage: 1000 MILLIGRAM (1000 MG, 0.5?0?0.5?0, TABLETS)
  22. PREGABALIN. [Concomitant]
     Active Substance: PREGABALIN
     Dosage: 50 MILLIGRAM (50 MG, 1?0?1?0, CAPSULES)
  23. MACROGOL [Concomitant]
     Active Substance: POLYETHYLENE GLYCOLS
     Dosage: UNK (POWDER, ON DEMAND)
  24. DULAGLUTIDE. [Concomitant]
     Active Substance: DULAGLUTIDE
     Dosage: 1.5 MILLIGRAM, QW (1.5 MG / WEEK,, 1?0?0?0,INJECTION/INFUSION SOLUTION)
     Route: 058
  25. BERODUAL [Concomitant]
     Active Substance: FENOTEROL HYDROBROMIDE\IPRATROPIUM BROMIDE
     Dosage: UNK (ON DEMAND)
     Route: 055

REACTIONS (4)
  - Cough [Unknown]
  - Cardiac failure [Unknown]
  - Dyspnoea exertional [Unknown]
  - Peripheral swelling [Unknown]
